FAERS Safety Report 8434206-1 (Version None)
Quarter: 2012Q2

REPORT INFORMATION
  Report Type: 
  Country: None (occurrence: None)
  Receive Date: 20120613
  Receipt Date: 20120601
  Transmission Date: 20120825
  Serious: No
  Sender: FDA-Public Use
  Company Number: US-ASTRAZENECA-2012SE37015

PATIENT
  Age: 88 Year
  Sex: Female
  Weight: 47.6 kg

DRUGS (2)
  1. CRESTOR [Suspect]
     Indication: BLOOD CHOLESTEROL INCREASED
     Route: 048
     Dates: start: 20120404, end: 20120516
  2. INDERAL [Concomitant]
     Indication: TREMOR

REACTIONS (1)
  - HAIR GROWTH ABNORMAL [None]
